FAERS Safety Report 25628438 (Version 1)
Quarter: 2025Q3

REPORT INFORMATION
  Report Type: Spontaneous
  Country: CL (occurrence: CL)
  Receive Date: 20250731
  Receipt Date: 20250731
  Transmission Date: 20251020
  Serious: Yes (Other)
  Sender: ALEXION PHARMACEUTICALS
  Company Number: CL-SA-2025SA220123

PATIENT
  Age: 26 Day
  Sex: Female

DRUGS (2)
  1. NIRSEVIMAB [Suspect]
     Active Substance: NIRSEVIMAB
     Indication: Immunisation
     Route: 065
  2. PHYTONADIONE [Concomitant]
     Active Substance: PHYTONADIONE
     Route: 065

REACTIONS (5)
  - Injection site inflammation [Recovered/Resolved]
  - Myositis [Recovered/Resolved]
  - Injection site nodule [Recovered/Resolved]
  - Injection site pain [Recovered/Resolved]
  - Injection site induration [Recovered/Resolved]
